FAERS Safety Report 8806991 (Version 2)
Quarter: 2014Q3

REPORT INFORMATION
  Report Type: Report from Study
  Country: US (occurrence: US)
  Receive Date: 20120925
  Receipt Date: 20140801
  Transmission Date: 20150326
  Serious: Yes (Death, Hospitalization, Other)
  Sender: FDA-Public Use
  Company Number: US-ROCHE-1102833

PATIENT
  Sex: Female
  Weight: 54.2 kg

DRUGS (4)
  1. INTERLEUKIN 2 [Concomitant]
  2. AVASTIN [Suspect]
     Active Substance: BEVACIZUMAB
     Indication: METASTATIC RENAL CELL CARCINOMA
  3. SORAFENIB [Concomitant]
     Active Substance: SORAFENIB
     Dosage: NEXAVAR
     Route: 065
  4. AVASTIN [Suspect]
     Active Substance: BEVACIZUMAB
     Indication: RENAL CANCER
     Route: 042

REACTIONS (4)
  - Disease progression [Unknown]
  - Pleural effusion [Unknown]
  - Dyspnoea [Unknown]
  - Death [Fatal]
